APPROVED DRUG PRODUCT: SOTALOL HYDROCHLORIDE
Active Ingredient: SOTALOL HYDROCHLORIDE
Strength: 160MG
Dosage Form/Route: TABLET;ORAL
Application: A077070 | Product #003 | TE Code: AB
Applicant: EPIC PHARMA LLC
Approved: Nov 4, 2005 | RLD: No | RS: No | Type: RX